FAERS Safety Report 21126231 (Version 1)
Quarter: 2022Q3

REPORT INFORMATION
  Report Type: Spontaneous
  Country: US (occurrence: None)
  Receive Date: 20220724
  Receipt Date: 20220724
  Transmission Date: 20221026
  Serious: Yes (Life-Threatening, Disabling, Other)
  Sender: FDA-Public Use
  Company Number: None

PATIENT
  Age: 59 Year
  Sex: Male
  Weight: 72 kg

DRUGS (9)
  1. INSULIN GLARGINE-YFGN [Suspect]
     Active Substance: INSULIN GLARGINE-YFGN
     Indication: Type 2 diabetes mellitus
     Dosage: OTHER STRENGTH : 100 UNITS/ML ;?FREQUENCY : AT BEDTIME;?
     Route: 030
     Dates: start: 20220601
  2. METFORMIN [Concomitant]
     Active Substance: METFORMIN HYDROCHLORIDE
  3. INSULIN NOS [Concomitant]
     Active Substance: INSULIN NOS
  4. PLAVIX [Concomitant]
     Active Substance: CLOPIDOGREL BISULFATE
  5. ASPIRIN [Concomitant]
     Active Substance: ASPIRIN
  6. OXYCODONE [Concomitant]
     Active Substance: OXYCODONE
  7. PREGABALIN [Concomitant]
     Active Substance: PREGABALIN
  8. VITAMINS [Concomitant]
     Active Substance: VITAMINS
  9. Contour next one test strips [Concomitant]

REACTIONS (4)
  - Hyperglycaemia [None]
  - Recalled product administered [None]
  - Drug ineffective [None]
  - Loss of personal independence in daily activities [None]

NARRATIVE: CASE EVENT DATE: 20220601
